FAERS Safety Report 25316979 (Version 1)
Quarter: 2025Q2

REPORT INFORMATION
  Report Type: Report from Study
  Country: US (occurrence: US)
  Receive Date: 20250515
  Receipt Date: 20250515
  Transmission Date: 20250717
  Serious: No
  Sender: ACADIA PHARMACEUTICALS
  Company Number: US-ACADIA PHARMACEUTICALS INC.-ACA-2025-PIM-005717

PATIENT
  Age: 88 Year
  Sex: Female

DRUGS (14)
  1. NUPLAZID [Suspect]
     Active Substance: PIMAVANSERIN TARTRATE
     Indication: Parkinson^s disease
     Dosage: 34 MILLIGRAM, QD
     Route: 048
     Dates: start: 20220224
  2. SINEMET [Concomitant]
     Active Substance: CARBIDOPA\LEVODOPA
  3. METOPROLOL [Concomitant]
     Active Substance: METOPROLOL
  4. FAMOTIDINE [Concomitant]
     Active Substance: FAMOTIDINE
  5. CHOLECALCIFEROL [Concomitant]
     Active Substance: CHOLECALCIFEROL
  6. VENLAFAXINE [Concomitant]
     Active Substance: VENLAFAXINE HYDROCHLORIDE
  7. LEVOTHROID [Concomitant]
     Active Substance: LEVOTHYROXINE SODIUM
  8. FUROSEMIDE [Concomitant]
     Active Substance: FUROSEMIDE
  9. ASPIRIN [Concomitant]
     Active Substance: ASPIRIN
  10. ALLOPURINOL [Concomitant]
     Active Substance: ALLOPURINOL
  11. TRAMADOL [Concomitant]
     Active Substance: TRAMADOL
  12. DETROL [Concomitant]
     Active Substance: TOLTERODINE TARTRATE
  13. AMLODIPINE [Concomitant]
     Active Substance: AMLODIPINE BESYLATE
  14. OXYBUTYNIN [Concomitant]
     Active Substance: OXYBUTYNIN

REACTIONS (2)
  - Cough [Unknown]
  - Urinary tract infection [Unknown]

NARRATIVE: CASE EVENT DATE: 20250320
